FAERS Safety Report 25420970 (Version 1)
Quarter: 2025Q2

REPORT INFORMATION
  Report Type: Spontaneous
  Country: ES (occurrence: ES)
  Receive Date: 20250611
  Receipt Date: 20250611
  Transmission Date: 20250716
  Serious: Yes (Other)
  Sender: CHEPLAPHARM
  Company Number: None

PATIENT
  Age: 80 Year
  Sex: Female

DRUGS (13)
  1. CARVEDILOL [Interacting]
     Active Substance: CARVEDILOL
     Indication: Essential hypertension
     Dosage: 28 TABLETS?DAILY DOSE: 25 MILLIGRAM
     Route: 048
     Dates: start: 202104, end: 20250411
  2. QUETIAPINE [Suspect]
     Active Substance: QUETIAPINE
     Dosage: 100MG 60 FILM COATED TABLETS EFG ?DAILY DOSE: 1 DOSAGE FORM
     Dates: start: 202104
  3. LANREOTIDE ACETATE [Interacting]
     Active Substance: LANREOTIDE ACETATE
     Dosage: AUTOGEL 120 MG INJECTABLE SOLUTION IN PRECARGED SYRINGE
     Route: 058
     Dates: start: 202104
  4. RAMIPRIL [Concomitant]
     Active Substance: RAMIPRIL
     Dosage: 10MG 28 TABLETS EFG ?DAILY DOSE: 1 DOSAGE FORM
     Dates: start: 202302
  5. JARDIANCE [Concomitant]
     Active Substance: EMPAGLIFLOZIN
     Dosage: 10MG 30 FILM COATED TABLETS ?DAILY DOSE: 1 DOSAGE FORM
     Dates: start: 202206
  6. METFORMIN [Concomitant]
     Active Substance: METFORMIN HYDROCHLORIDE
     Dosage: 850MG 50 TABLET FILM COATED EFG ?DAILY DOSE: 2 DOSAGE FORM
     Dates: start: 202206
  7. METFORMIN [Concomitant]
     Active Substance: METFORMIN HYDROCHLORIDE
     Dosage: 850MG 50 TABLET FILM COATED EFG ?DAILY DOSE: 1 DOSAGE FORM
     Dates: start: 202206
  8. SIMVASTATIN [Concomitant]
     Active Substance: SIMVASTATIN
     Dosage: 10MG 28 TABLET FILM COATED EFG ?DAILY DOSE: 1 DOSAGE FORM
  9. MIRTAZAPINE [Concomitant]
     Active Substance: MIRTAZAPINE
     Dosage: 15MG 30 TABLETS EFG ?DAILY DOSE: 1 DOSAGE FORM
     Dates: start: 202311
  10. LORMETAZEPAM [Concomitant]
     Active Substance: LORMETAZEPAM
     Dosage: 1MG 30 TABLETS EFG ?DAILY DOSE: 1 DOSAGE FORM
     Dates: start: 202311
  11. HYDROCHLOROTHIAZIDE [Concomitant]
     Active Substance: HYDROCHLOROTHIAZIDE
     Dosage: 25MG 20 TABLETS ?DAILY DOSE: 1 DOSAGE FORM
  12. Nolotil [Concomitant]
     Dosage: 575MG 20 CAPSULES ?DAILY DOSE: 1 DOSAGE FORM
  13. OMEPRAZOLE [Concomitant]
     Active Substance: OMEPRAZOLE
     Dosage: 20MG 56 CAPS HARD GASTRO-RESISTANT EFG ?DAILY DOSE: 1 DOSAGE FORM

REACTIONS (7)
  - Sinus bradycardia [Recovered/Resolved]
  - Loss of consciousness [Unknown]
  - Depressed level of consciousness [Unknown]
  - Abdominal pain lower [Unknown]
  - Diarrhoea [Unknown]
  - Abdominal hernia [Unknown]
  - Iron deficiency anaemia [Unknown]

NARRATIVE: CASE EVENT DATE: 20250411
